FAERS Safety Report 24881578 (Version 1)
Quarter: 2025Q1

REPORT INFORMATION
  Report Type: Report from Study
  Country: US (occurrence: US)
  Receive Date: 20250124
  Receipt Date: 20250124
  Transmission Date: 20250408
  Serious: Yes (Other)
  Sender: ABBVIE
  Company Number: US-ABBVIE-6092519

PATIENT
  Sex: Female

DRUGS (1)
  1. LUPRON [Suspect]
     Active Substance: LEUPROLIDE ACETATE
     Indication: Breast cancer
     Route: 030
     Dates: start: 202501

REACTIONS (8)
  - Neoplasm progression [Not Recovered/Not Resolved]
  - Hypoaesthesia [Unknown]
  - Back pain [Unknown]
  - Chest pain [Unknown]
  - Off label use [Unknown]
  - Paraesthesia [Unknown]
  - Unevaluable event [Unknown]
  - Pain in extremity [Unknown]
